FAERS Safety Report 7799837-0 (Version None)
Quarter: 2011Q4

REPORT INFORMATION
  Report Type: 
  Country: None (occurrence: None)
  Receive Date: 20111004
  Receipt Date: 20110927
  Transmission Date: 20120403
  Serious: Yes (Hospitalization, Other)
  Sender: FDA-Public Use
  Company Number: AUR-APL-2011-05182

PATIENT
  Age: 34 Year
  Sex: Male

DRUGS (3)
  1. INSULIN [Suspect]
     Indication: CARDIOGENIC SHOCK
  2. QUETIAPINE FUMARATE [Suspect]
     Indication: PRODUCT USED FOR UNKNOWN INDICATION
     Dosage: ORAL
     Route: 048
  3. METOPROLOL TARTRATE [Suspect]
     Indication: PRODUCT USED FOR UNKNOWN INDICATION
     Dosage: ORAL
     Route: 048

REACTIONS (3)
  - CARDIOGENIC SHOCK [None]
  - HYPOKALAEMIA [None]
  - HYPOGLYCAEMIA [None]
